FAERS Safety Report 11719578 (Version 1)
Quarter: 2015Q4

REPORT INFORMATION
  Report Type: Spontaneous
  Country: HU (occurrence: HU)
  Receive Date: 20151110
  Receipt Date: 20151110
  Transmission Date: 20160304
  Serious: Yes (Other)
  Sender: FDA-Public Use
  Company Number: HU-PFIZER INC-2015330364

PATIENT
  Age: 53 Year
  Sex: Male

DRUGS (2)
  1. SUTENT [Suspect]
     Active Substance: SUNITINIB MALATE
     Indication: CLEAR CELL RENAL CELL CARCINOMA
     Dosage: 50 MG, DAILY,4 WEEKS ON, 2 WEEKS OFF
     Route: 048
     Dates: start: 20150910
  2. SUTENT [Suspect]
     Active Substance: SUNITINIB MALATE
     Dosage: 50 MG, DAILY,2 WEEKS ON, 1 WEEKS OFF
     Route: 048
     Dates: start: 20150910

REACTIONS (6)
  - Cough [Unknown]
  - Choking [Unknown]
  - Blood pressure increased [Unknown]
  - Hydrothorax [Unknown]
  - Disease progression [Unknown]
  - Clear cell renal cell carcinoma [Unknown]

NARRATIVE: CASE EVENT DATE: 201509
